FAERS Safety Report 7441022-6 (Version None)
Quarter: 2011Q2

REPORT INFORMATION
  Report Type: 
  Country: None (occurrence: None)
  Receive Date: 20110427
  Receipt Date: 20110418
  Transmission Date: 20111010
  Serious: Yes (Hospitalization)
  Sender: FDA-Public Use
  Company Number: ES-ABBOTT-11P-144-0719757-00

PATIENT
  Age: 43 Year
  Sex: Male

DRUGS (2)
  1. HUMIRA [Suspect]
     Indication: PSORIASIS
     Route: 058
     Dates: start: 20090522, end: 20090522
  2. HUMIRA [Suspect]
     Route: 058
     Dates: end: 20101019

REACTIONS (2)
  - SPLEEN DISORDER [None]
  - RETROPERITONEAL LYMPHADENOPATHY [None]
